FAERS Safety Report 26161186 (Version 1)
Quarter: 2025Q4

REPORT INFORMATION
  Report Type: Spontaneous
  Country: US (occurrence: None)
  Receive Date: 20251216
  Receipt Date: 20251216
  Transmission Date: 20260118
  Serious: No
  Sender: ENDO
  Company Number: US-ENDO USA, INC.-2025-001796

PATIENT
  Age: 67 Year
  Sex: Male

DRUGS (2)
  1. XIAFLEX [Suspect]
     Active Substance: COLLAGENASE CLOSTRIDIUM HISTOLYTICUM
     Indication: Peyronie^s disease
     Dosage: 0.58 MILLIGRAM, UNKNOWN (1 X ON 2 DAYS, 1-3 DAYS APART EVERY 6 WEEKS, MAY REPEAT UP TO 4 CYCLES)
  2. XIAFLEX [Suspect]
     Active Substance: COLLAGENASE CLOSTRIDIUM HISTOLYTICUM
     Dosage: 0.58 MILLIGRAM, UNKNOWN (1 X ON 2 DAYS, 1-3 DAYS APART EVERY 6 WEEKS, MAY REPEAT UP TO 4 CYCLES)

REACTIONS (3)
  - Pyrexia [Recovered/Resolved]
  - Chills [Recovered/Resolved]
  - Injection site pruritus [Recovered/Resolved]

NARRATIVE: CASE EVENT DATE: 20250601
